FAERS Safety Report 7724894-7 (Version None)
Quarter: 2011Q3

REPORT INFORMATION
  Report Type: 
  Country: None (occurrence: None)
  Receive Date: 20110829
  Receipt Date: 20110815
  Transmission Date: 20111222
  Serious: No
  Sender: FDA-Public Use
  Company Number: VER-2011-00653

PATIENT
  Age: 76 Year
  Sex: Male
  Weight: 190 kg

DRUGS (9)
  1. ASPIRIN [Concomitant]
  2. COREG [Concomitant]
  3. CYCLOSET [Suspect]
     Indication: DIABETES MELLITUS
     Dosage: (0.8 MG9,Q AM),ORAL
     Route: 048
     Dates: start: 20110811, end: 20110814
  4. DIOVAN [Concomitant]
  5. METFORMIN HCL [Concomitant]
  6. LASIX [Concomitant]
  7. OMEPRAZOLE [Concomitant]
  8. AMIODARONE HCL [Concomitant]
  9. AMBIENT (ZOLPIDEM TARTRATE) [Concomitant]

REACTIONS (2)
  - DIZZINESS [None]
  - HYPOTENSION [None]
